FAERS Safety Report 9628449 (Version 1)
Quarter: 2013Q4

REPORT INFORMATION
  Report Type: Spontaneous
  Country: US (occurrence: US)
  Receive Date: 20131017
  Receipt Date: 20131017
  Transmission Date: 20140711
  Serious: No
  Sender: FDA-Public Use
  Company Number: US-PFIZER INC-2013294019

PATIENT
  Age: 56 Year
  Sex: 0
  Weight: 81.63 kg

DRUGS (2)
  1. VIAGRA [Suspect]
     Dosage: 100 MG, UNK
  2. WARFARIN [Concomitant]
     Indication: COAGULOPATHY
     Dosage: UNK

REACTIONS (1)
  - Drug ineffective [Unknown]
